FAERS Safety Report 5240429-5 (Version None)
Quarter: 2007Q1

REPORT INFORMATION
  Report Type: 
  Country: None (occurrence: None)
  Receive Date: 20070219
  Receipt Date: 20070205
  Transmission Date: 20070707
  Serious: Yes (Other)
  Sender: FDA-Public Use
  Company Number: PHNU2006DE03380

PATIENT
  Sex: Female
  Weight: 70 kg

DRUGS (1)
  1. SANDOSTATIN LAR [Suspect]
     Indication: ACROMEGALY
     Dosage: 10 MG ONCE IN 4 WEEKS
     Route: 030
     Dates: start: 20030501

REACTIONS (1)
  - OSTEONECROSIS [None]
